FAERS Safety Report 19140743 (Version 1)
Quarter: 2021Q2

REPORT INFORMATION
  Report Type: Spontaneous
  Country: DE (occurrence: DE)
  Receive Date: 20210415
  Receipt Date: 20210415
  Transmission Date: 20210717
  Serious: Yes (Other)
  Sender: FDA-Public Use
  Company Number: DE-TEVA-2021-DE-1901399

PATIENT
  Age: 7 Decade
  Sex: Female
  Weight: 90 kg

DRUGS (2)
  1. LERCANIDIPIN PUREN 10 MG FILMTABLETTEN [Concomitant]
     Dosage: 10 MILLIGRAM DAILY;
     Route: 065
     Dates: start: 20200210
  2. METOPROLOL?RATIOPHARM SUCCINAT 47.5 MG RETARDTABLETTEN [Suspect]
     Active Substance: METOPROLOL SUCCINATE
     Dosage: 47.5 MILLIGRAM DAILY;
     Route: 065
     Dates: start: 20200210

REACTIONS (5)
  - Asthenia [Not Recovered/Not Resolved]
  - Hyperhidrosis [Not Recovered/Not Resolved]
  - Headache [Not Recovered/Not Resolved]
  - Respiratory tract infection [Recovered/Resolved]
  - Myalgia [Not Recovered/Not Resolved]

NARRATIVE: CASE EVENT DATE: 20200330
